FAERS Safety Report 7213277-4 (Version None)
Quarter: 2010Q4

REPORT INFORMATION
  Report Type: 
  Country: None (occurrence: None)
  Receive Date: 20101229
  Receipt Date: 20101215
  Transmission Date: 20110411
  Serious: Yes (Other)
  Sender: FDA-Public Use
  Company Number: 012368

PATIENT
  Age: 52 Year
  Sex: Male

DRUGS (3)
  1. SAMSCA [Suspect]
     Dosage: 15 MG, QD
  2. DEXTROSE 5% [Concomitant]
  3. SODIUM CHLORIDE 0.9% [Concomitant]

REACTIONS (2)
  - BLOOD SODIUM INCREASED [None]
  - CONVULSION [None]
